FAERS Safety Report 4672951-4 (Version None)
Quarter: 2005Q2

REPORT INFORMATION
  Report Type: 
  Country: None (occurrence: None)
  Receive Date: 20050524
  Receipt Date: 20041126
  Transmission Date: 20051028
  Serious: Yes (Life-Threatening, Hospitalization)
  Sender: FDA-Public Use
  Company Number: DE-MERCK-0411DEU00530

PATIENT
  Age: 64 Year
  Sex: Male
  Weight: 64 kg

DRUGS (7)
  1. VIOXX [Suspect]
     Indication: SCIATICA
     Route: 048
     Dates: start: 20030327, end: 20030425
  2. VIOXX [Suspect]
     Route: 048
     Dates: start: 20040429, end: 20040530
  3. VIOXX [Suspect]
     Route: 048
     Dates: start: 20040618, end: 20040701
  4. NATEGLINIDE [Concomitant]
     Indication: DIABETES MELLITUS
     Route: 065
     Dates: start: 20030228
  5. ATORVASTATIN CALCIUM [Suspect]
     Route: 048
     Dates: start: 20040801
  6. ATORVASTATIN CALCIUM [Suspect]
     Route: 048
     Dates: start: 20040701, end: 20040801
  7. RAMIPRIL [Suspect]
     Route: 048
     Dates: start: 20040701

REACTIONS (5)
  - ACUTE CORONARY SYNDROME [None]
  - GASTRITIS [None]
  - HYPERTENSION [None]
  - MUSCLE SPASMS [None]
  - MYALGIA [None]
